FAERS Safety Report 5157106-1 (Version None)
Quarter: 2006Q4

REPORT INFORMATION
  Report Type: 
  Country: None (occurrence: None)
  Receive Date: 20061116
  Receipt Date: 20061102
  Transmission Date: 20070319
  Serious: Yes (Hospitalization)
  Sender: FDA-Public Use
  Company Number: FABR-11725

PATIENT
  Age: 41 Year
  Sex: Male
  Weight: 105 kg

DRUGS (1)
  1. FABRAZYME [Suspect]
     Indication: FABRY'S DISEASE
     Dosage: 1 MG/KG Q2WKS IV
     Route: 042
     Dates: start: 20060101

REACTIONS (2)
  - SKIN INFECTION [None]
  - STAPHYLOCOCCAL INFECTION [None]
